FAERS Safety Report 18417439 (Version 1)
Quarter: 2020Q4

REPORT INFORMATION
  Report Type: Spontaneous
  Country: US (occurrence: US)
  Receive Date: 20201022
  Receipt Date: 20201022
  Transmission Date: 20210114
  Serious: No
  Sender: FDA-Public Use
  Company Number: 2020SGN02528

PATIENT
  Sex: Female

DRUGS (3)
  1. TUKYSA [Suspect]
     Active Substance: TUCATINIB
     Indication: BREAST CANCER FEMALE
     Dosage: UNK UNK, BID
     Dates: start: 20200605
  2. CAPECITABINE. [Concomitant]
     Active Substance: CAPECITABINE
     Indication: BREAST CANCER FEMALE
     Dosage: UNK
     Dates: start: 20200605
  3. HERCEPTIN [Concomitant]
     Active Substance: TRASTUZUMAB
     Indication: BREAST CANCER FEMALE
     Dosage: UNK
     Dates: start: 20200603, end: 20200603

REACTIONS (11)
  - Taste disorder [Unknown]
  - Decreased appetite [Unknown]
  - Product dose omission issue [Unknown]
  - Dry mouth [Unknown]
  - Spinal pain [Unknown]
  - Skin exfoliation [Unknown]
  - Faeces soft [Unknown]
  - Urine analysis abnormal [Unknown]
  - Constipation [Unknown]
  - Unevaluable event [Unknown]
  - Erythema [Unknown]
